FAERS Safety Report 5027524-0 (Version None)
Quarter: 2006Q2

REPORT INFORMATION
  Report Type: 
  Country: None (occurrence: None)
  Receive Date: 20060616
  Receipt Date: 20060526
  Transmission Date: 20061013
  Serious: Yes (Other)
  Sender: FDA-Public Use
  Company Number: GB-RB-3381-2006

PATIENT
  Sex: Female

DRUGS (5)
  1. BUPRENORPHINE HCL [Suspect]
     Route: 048
     Dates: start: 20041101
  2. CHLORDIAZEPOXIDE HCL [Suspect]
     Indication: ALCOHOL DETOXIFICATION
     Route: 048
     Dates: start: 20060131, end: 20060202
  3. CHLORDIAZEPOXIDE HCL [Suspect]
     Route: 048
     Dates: start: 20060202
  4. SALBUTAMOL [Concomitant]
     Indication: DRUG USE FOR UNKNOWN INDICATION
     Dosage: DOSAGE UNKNOWN
     Route: 065
  5. MEDICINALPRODUCT NOT SPECIFIED BY SENDER [Concomitant]
     Indication: DRUG USE FOR UNKNOWN INDICATION
     Dosage: DOSAGE UNKNOWN
     Route: 065

REACTIONS (1)
  - RESPIRATORY ARREST [None]
